FAERS Safety Report 7868929-X (Version None)
Quarter: 2011Q4

REPORT INFORMATION
  Report Type: 
  Country: None (occurrence: None)
  Receive Date: 20111028
  Receipt Date: 20101221
  Transmission Date: 20120403
  Serious: No
  Sender: FDA-Public Use
  Company Number: US-AMGEN-USASP2010010550

PATIENT
  Age: 53 Year
  Sex: Female

DRUGS (2)
  1. METHOTREXATE [Concomitant]
     Dates: start: 20100101
  2. ENBREL [Suspect]
     Indication: RHEUMATOID ARTHRITIS
     Dates: start: 20041201, end: 20101206

REACTIONS (6)
  - ERYTHEMA [None]
  - SNEEZING [None]
  - NASAL CONGESTION [None]
  - PAIN [None]
  - MUSCULOSKELETAL STIFFNESS [None]
  - COUGH [None]
